FAERS Safety Report 10059065 (Version 1)
Quarter: 2014Q2

REPORT INFORMATION
  Report Type: Spontaneous
  Country: FR (occurrence: FR)
  Receive Date: 20140404
  Receipt Date: 20140404
  Transmission Date: 20141212
  Serious: Yes (Hospitalization, Disabling, Other)
  Sender: FDA-Public Use
  Company Number: FR-PFIZER INC-2014089480

PATIENT
  Age: 70 Year
  Sex: Male

DRUGS (10)
  1. REVATIO [Suspect]
     Dosage: 20 MG, 1X/DAY
     Route: 048
     Dates: start: 20131129, end: 20140203
  2. LASILIX [Suspect]
     Dosage: 40 MG, 1X/DAY
     Route: 048
     Dates: start: 20131206
  3. AERIUS [Concomitant]
     Dosage: 5 MG, 2X/DAY
     Route: 048
     Dates: start: 20131002
  4. XYZALL [Concomitant]
     Dosage: 5 MG, 1X/DAY
     Route: 048
     Dates: start: 20131002
  5. PERINDOPRIL [Concomitant]
     Dosage: 4 MG, 1X/DAY
     Route: 048
     Dates: start: 20131002
  6. AZANTAC [Concomitant]
     Dosage: 300 MG, 2X/DAY
     Route: 048
     Dates: start: 20131002
  7. ALENDRONIC ACID [Concomitant]
     Dosage: 70 MG, WEEKLY
     Route: 048
     Dates: start: 20131002
  8. INNOHEP [Concomitant]
     Dosage: 10000 IU, 1X/DAY
     Route: 058
     Dates: start: 20131206
  9. UVEDOSE [Concomitant]
     Dosage: 2.5 MG/2 ML EVERY 15 DAYS
  10. HEPARIN [Concomitant]
     Dosage: UNK
     Dates: end: 20140124

REACTIONS (4)
  - Deafness bilateral [Not Recovered/Not Resolved]
  - Ear pain [Unknown]
  - Dyspnoea [Unknown]
  - Pulmonary sepsis [Unknown]
